FAERS Safety Report 21304394 (Version 3)
Quarter: 2024Q3

REPORT INFORMATION
  Report Type: Spontaneous
  Country: US (occurrence: None)
  Receive Date: 20220907
  Receipt Date: 20240906
  Transmission Date: 20241017
  Serious: No
  Sender: DOMPE FARMACEUTICI
  Company Number: US-ARIS GLOBAL-202108-1351

PATIENT
  Age: 70 Year
  Sex: Female
  Weight: 76.2 kg

DRUGS (36)
  1. OXERVATE [Suspect]
     Active Substance: CENEGERMIN-BKBJ
     Indication: Neurotrophic keratopathy
     Route: 047
     Dates: start: 20210524, end: 20210719
  2. OXERVATE [Suspect]
     Active Substance: CENEGERMIN-BKBJ
     Route: 047
     Dates: start: 20210810, end: 20211005
  3. OXERVATE [Suspect]
     Active Substance: CENEGERMIN-BKBJ
     Route: 047
     Dates: start: 20211026, end: 20211221
  4. OXERVATE [Suspect]
     Active Substance: CENEGERMIN-BKBJ
     Route: 047
     Dates: start: 20211221, end: 20220215
  5. OXERVATE [Suspect]
     Active Substance: CENEGERMIN-BKBJ
     Route: 047
     Dates: start: 20220215, end: 20220412
  6. OXERVATE [Suspect]
     Active Substance: CENEGERMIN-BKBJ
     Route: 047
     Dates: start: 20220429, end: 20220620
  7. OXERVATE [Suspect]
     Active Substance: CENEGERMIN-BKBJ
     Route: 047
     Dates: start: 20220712, end: 20220905
  8. OXERVATE [Suspect]
     Active Substance: CENEGERMIN-BKBJ
     Route: 047
     Dates: start: 20220906, end: 20221101
  9. OXERVATE [Suspect]
     Active Substance: CENEGERMIN-BKBJ
     Route: 047
     Dates: start: 20221101, end: 20221226
  10. OXERVATE [Suspect]
     Active Substance: CENEGERMIN-BKBJ
     Route: 047
     Dates: start: 20221227, end: 20230314
  11. OXERVATE [Suspect]
     Active Substance: CENEGERMIN-BKBJ
     Route: 047
     Dates: start: 20230321, end: 20230515
  12. OXERVATE [Suspect]
     Active Substance: CENEGERMIN-BKBJ
     Route: 047
     Dates: start: 20230516, end: 20230710
  13. OXERVATE [Suspect]
     Active Substance: CENEGERMIN-BKBJ
     Route: 047
     Dates: start: 20230711
  14. OXERVATE [Suspect]
     Active Substance: CENEGERMIN-BKBJ
  15. OXERVATE [Suspect]
     Active Substance: CENEGERMIN-BKBJ
  16. OXERVATE [Suspect]
     Active Substance: CENEGERMIN-BKBJ
  17. OXERVATE [Suspect]
     Active Substance: CENEGERMIN-BKBJ
  18. OXERVATE [Suspect]
     Active Substance: CENEGERMIN-BKBJ
  19. OXERVATE [Suspect]
     Active Substance: CENEGERMIN-BKBJ
  20. OXERVATE [Suspect]
     Active Substance: CENEGERMIN-BKBJ
  21. OXERVATE [Suspect]
     Active Substance: CENEGERMIN-BKBJ
  22. OXERVATE [Suspect]
     Active Substance: CENEGERMIN-BKBJ
  23. OXERVATE [Suspect]
     Active Substance: CENEGERMIN-BKBJ
  24. OXERVATE [Suspect]
     Active Substance: CENEGERMIN-BKBJ
  25. SERUM TEARS [Concomitant]
  26. LUTEIN [Concomitant]
     Active Substance: LUTEIN
  27. MENAQUINONE 6 [Concomitant]
     Active Substance: MENAQUINONE 6
  28. VITAMIN K [Concomitant]
     Active Substance: PHYTONADIONE
  29. VITAMIN C [Concomitant]
     Active Substance: ASCORBIC ACID
  30. VITAMIN D-400 [Concomitant]
  31. VITAMIN E [Concomitant]
     Active Substance: .ALPHA.-TOCOPHEROL
  32. FISH OIL [Concomitant]
     Active Substance: FISH OIL
  33. ACYCLOVIR [Concomitant]
     Active Substance: ACYCLOVIR
     Indication: Prophylaxis
     Route: 048
     Dates: start: 20220408
  34. LOTEMAX [Concomitant]
     Active Substance: LOTEPREDNOL ETABONATE
     Indication: Keratitis
     Dosage: AT BEDTIME
     Route: 061
     Dates: start: 202108
  35. VALTREX [Concomitant]
     Active Substance: VALACYCLOVIR HYDROCHLORIDE
  36. PREDNISOLONE [Concomitant]
     Active Substance: PREDNISOLONE

REACTIONS (13)
  - Bronchiolitis [Recovered/Resolved]
  - Off label use [Unknown]
  - Disease recurrence [Not Recovered/Not Resolved]
  - Weight increased [Unknown]
  - Weight decreased [Unknown]
  - Malaise [Unknown]
  - Product administration error [Unknown]
  - Eye pain [Recovering/Resolving]
  - Ocular hyperaemia [Unknown]
  - Amnesia [Not Recovered/Not Resolved]
  - Muscle spasms [Unknown]
  - Device use issue [Unknown]
  - Post-traumatic stress disorder [Unknown]

NARRATIVE: CASE EVENT DATE: 20220429
